FAERS Safety Report 7199014-0 (Version None)
Quarter: 2010Q4

REPORT INFORMATION
  Report Type: 
  Country: None (occurrence: None)
  Receive Date: 20101228
  Receipt Date: 20101217
  Transmission Date: 20110411
  Serious: No
  Sender: FDA-Public Use
  Company Number: US-BIOGENIDEC-2010BI023911

PATIENT
  Age: 41 Year
  Sex: Male

DRUGS (1)
  1. TYSABRI [Suspect]
     Indication: MULTIPLE SCLEROSIS
     Route: 042
     Dates: start: 20100129, end: 20100528

REACTIONS (11)
  - AGITATION [None]
  - BLOOD COUNT ABNORMAL [None]
  - BONE PAIN [None]
  - COGNITIVE DISORDER [None]
  - CONTUSION [None]
  - DEPRESSION [None]
  - HEADACHE [None]
  - INDIFFERENCE [None]
  - MEMORY IMPAIRMENT [None]
  - MUSCLE SPASMS [None]
  - URINARY TRACT INFECTION [None]
